FAERS Safety Report 25033955 (Version 1)
Quarter: 2025Q1

REPORT INFORMATION
  Report Type: Spontaneous
  Country: US (occurrence: US)
  Receive Date: 20250303
  Receipt Date: 20250303
  Transmission Date: 20250408
  Serious: No
  Sender: ABBVIE
  Company Number: US-ABBVIE-6152629

PATIENT
  Sex: Female

DRUGS (1)
  1. SAVELLA [Suspect]
     Active Substance: MILNACIPRAN HYDROCHLORIDE
     Indication: Fibromyalgia
     Route: 048

REACTIONS (4)
  - Brain fog [Not Recovered/Not Resolved]
  - Feeling abnormal [Unknown]
  - Tremor [Unknown]
  - Insomnia [Unknown]
